FAERS Safety Report 4263272-2 (Version None)
Quarter: 2004Q1

REPORT INFORMATION
  Report Type: 
  Country: None (occurrence: None)
  Receive Date: 20040105
  Receipt Date: 20031210
  Transmission Date: 20041129
  Serious: Yes (Hospitalization)
  Sender: FDA-Public Use
  Company Number: JP-GLAXOSMITHKLINE-B0318534A

PATIENT
  Age: 68 Year
  Sex: Female
  Weight: 52 kg

DRUGS (10)
  1. VALTREX [Suspect]
     Indication: HERPES ZOSTER
     Dosage: 1500MG PER DAY
     Route: 048
     Dates: start: 20031125, end: 20031127
  2. CEFAZOLIN SODIUM [Concomitant]
     Indication: CELLULITIS
     Dosage: 1G PER DAY
     Route: 042
     Dates: start: 20031125, end: 20031204
  3. SENNOSIDE [Concomitant]
     Indication: CONSTIPATION
     Dosage: 24MG PER DAY
     Route: 048
  4. AMLODIPINE BESYLATE [Concomitant]
     Indication: HYPERTENSION
     Dosage: 5MG PER DAY
     Route: 048
  5. QUINAPRIL HYDROCHLORIDE [Concomitant]
     Indication: HYPERTENSION
     Dosage: 10MG PER DAY
     Route: 048
     Dates: start: 20000328
  6. MOSAPRIDE CITRATE [Concomitant]
     Indication: GASTRITIS
     Dosage: 15MG PER DAY
     Route: 048
  7. TOCOPHEROL CONCENTRATE CAP [Concomitant]
     Indication: HYPERTENSION
     Dosage: 600MG PER DAY
     Route: 048
     Dates: start: 20000328
  8. PERITONEAL DIALYSIS [Concomitant]
     Dosage: 1UNIT FOUR TIMES PER DAY
  9. CLONAZEPAM [Concomitant]
     Indication: MUSCLE CRAMP
     Dosage: .3G PER DAY
     Route: 048
     Dates: start: 20020111
  10. UNKNOWN MEDICATION [Concomitant]
     Indication: MUSCLE CRAMP
     Dosage: 2.5G PER DAY
     Route: 048

REACTIONS (10)
  - CEREBRAL HAEMORRHAGE [None]
  - CEREBRAL INFARCTION [None]
  - DEPRESSED LEVEL OF CONSCIOUSNESS [None]
  - DYSKINESIA [None]
  - HAEMODIALYSIS [None]
  - LOGORRHOEA [None]
  - MENINGITIS [None]
  - MENTAL DISORDER [None]
  - RENAL FAILURE CHRONIC [None]
  - SPEECH DISORDER [None]
